FAERS Safety Report 5699315-9 (Version None)
Quarter: 2008Q2

REPORT INFORMATION
  Report Type: 
  Country: None (occurrence: None)
  Receive Date: 20080404
  Receipt Date: 20080325
  Transmission Date: 20081010
  Serious: Yes (Hospitalization)
  Sender: FDA-Public Use
  Company Number: TPA2008A00332

PATIENT
  Age: 50 Year
  Sex: Male
  Weight: 127.0072 kg

DRUGS (17)
  1. ACTOS [Suspect]
     Indication: TYPE 2 DIABETES MELLITUS
     Dosage: 15 MG, 2 IN 1 D, PER ORAL
     Route: 048
     Dates: start: 20031015
  2. METFORMIN HCL [Concomitant]
  3. LIPITOR [Concomitant]
  4. CARTIA XT [Concomitant]
  5. CLONIDINE [Concomitant]
  6. PLAVIX [Concomitant]
  7. LORATADINE [Concomitant]
  8. DIOVAN [Concomitant]
  9. DOXAZOSIN (DOXAZOSIN) [Concomitant]
  10. DYAZIDE [Concomitant]
  11. FOLIC ACID [Concomitant]
  12. GLIPIZIDE [Concomitant]
  13. NEXIUM [Concomitant]
  14. NIASPAN [Concomitant]
  15. ASPIRIN [Concomitant]
  16. NITROGLYCERIN [Concomitant]
  17. LORTAB [Concomitant]

REACTIONS (12)
  - ABSCESS [None]
  - APNOEA [None]
  - BLOOD LACTIC ACID INCREASED [None]
  - BLOOD PYRUVIC ACID INCREASED [None]
  - ENZYME ABNORMALITY [None]
  - FATIGUE [None]
  - HERNIA [None]
  - INCISION SITE ABSCESS [None]
  - NEUROPATHY PERIPHERAL [None]
  - PNEUMONIA [None]
  - POSTOPERATIVE ABSCESS [None]
  - PROCEDURAL SITE REACTION [None]
